FAERS Safety Report 8351490-3 (Version None)
Quarter: 2012Q2

REPORT INFORMATION
  Report Type: 
  Country: None (occurrence: None)
  Receive Date: 20120510
  Receipt Date: 20120426
  Transmission Date: 20120825
  Serious: Yes (Hospitalization)
  Sender: FDA-Public Use
  Company Number: CHPA2012US009998

PATIENT
  Sex: Female

DRUGS (2)
  1. FIORICET [Concomitant]
  2. EXCEDRIN (MIGRAINE) [Suspect]
     Indication: MIGRAINE
     Dosage: 1-2 DF, QD
     Route: 048
     Dates: start: 20070101

REACTIONS (7)
  - MALAISE [None]
  - CARDIAC FAILURE CONGESTIVE [None]
  - WEIGHT DECREASED [None]
  - VOMITING [None]
  - UNDERDOSE [None]
  - PAIN [None]
  - SWELLING [None]
